FAERS Safety Report 4885469-0 (Version None)
Quarter: 2005Q4

REPORT INFORMATION
  Report Type: 
  Country: None (occurrence: None)
  Receive Date: 20051216
  Receipt Date: 20050328
  Transmission Date: 20060501
  Serious: Yes (Other)
  Sender: FDA-Public Use
  Company Number: PHEH2005US03087

PATIENT
  Age: 46 Year
  Sex: Female

DRUGS (5)
  1. SANDOSTATIN [Suspect]
     Indication: ACROMEGALY
     Dosage: 50 UG, BID, SUBCUTANEOUS
     Route: 058
  2. ANTIBIOTICS [Concomitant]
  3. ACIPHEX [Concomitant]
  4. CLARITIN [Concomitant]
  5. MULTIVITAMINS (ASCORBIC ACID, ERGOCALCIFEROL, FOLIC ACID, NICOTINAMIDE [Concomitant]

REACTIONS (16)
  - ANXIETY [None]
  - DIZZINESS [None]
  - DYSPNOEA [None]
  - ERYTHEMA [None]
  - HYPERSENSITIVITY [None]
  - HYPERVENTILATION [None]
  - NAUSEA [None]
  - PALLOR [None]
  - PALPITATIONS [None]
  - RASH [None]
  - TACHYCARDIA [None]
  - TACHYPNOEA [None]
  - THROAT TIGHTNESS [None]
  - TREMOR [None]
  - URTICARIA GENERALISED [None]
  - VOMITING [None]
